FAERS Safety Report 21496184 (Version 1)
Quarter: 2022Q4

REPORT INFORMATION
  Report Type: Spontaneous
  Country: DK (occurrence: DK)
  Receive Date: 20221022
  Receipt Date: 20221022
  Transmission Date: 20230113
  Serious: Yes (Hospitalization)
  Sender: FDA-Public Use
  Company Number: None

PATIENT
  Age: 25 Year
  Sex: Female
  Weight: 73 kg

DRUGS (2)
  1. SERTRALINE HYDROCHLORIDE [Suspect]
     Active Substance: SERTRALINE HYDROCHLORIDE
     Indication: Depression
     Dosage: DOSE REDUCED TO 50 MG IN JUN2022. STRENGTH: 50 MG
     Dates: start: 20220304, end: 202206
  2. SERTRALINE HYDROCHLORIDE [Suspect]
     Active Substance: SERTRALINE HYDROCHLORIDE
     Indication: Depression
     Dosage: DOSE INCREASED FROM 50 MG TO 150 MG IN AUG2022. STRENGTH: 50 MG
     Dates: start: 20220816, end: 20220823

REACTIONS (5)
  - Respiratory arrest [Recovered/Resolved]
  - Confusional state [Unknown]
  - Anger [Unknown]
  - Seizure [Recovered/Resolved]
  - Mania [Unknown]

NARRATIVE: CASE EVENT DATE: 20220101
